FAERS Safety Report 11679267 (Version 2)
Quarter: 2015Q4

REPORT INFORMATION
  Report Type: Spontaneous
  Country: US (occurrence: US)
  Receive Date: 20151027
  Receipt Date: 20151104
  Transmission Date: 20160304
  Serious: No
  Sender: FDA-Public Use
  Company Number: US-ELI_LILLY_AND_COMPANY-US201009003343

PATIENT
  Sex: Female

DRUGS (2)
  1. FORTEO [Suspect]
     Active Substance: TERIPARATIDE
     Indication: OSTEOPOROSIS
     Dosage: 20 UG, DAILY (1/D)
     Dates: start: 20100708
  2. FORTEO [Suspect]
     Active Substance: TERIPARATIDE
     Dosage: 20 UG, DAILY (1/D)
     Dates: end: 20101201

REACTIONS (8)
  - Tremor [Unknown]
  - Joint swelling [Unknown]
  - Peripheral swelling [Unknown]
  - Contusion [Recovered/Resolved]
  - Dementia Alzheimer^s type [Unknown]
  - Amnesia [Unknown]
  - Nervousness [Unknown]
  - Dizziness [Unknown]
